FAERS Safety Report 17429127 (Version 1)
Quarter: 2020Q1

REPORT INFORMATION
  Report Type: Spontaneous
  Country: FR (occurrence: FR)
  Receive Date: 20200218
  Receipt Date: 20200218
  Transmission Date: 20200409
  Serious: Yes (Hospitalization)
  Sender: FDA-Public Use
  Company Number: FR-TEVA-2020-FR-1187492

PATIENT
  Age: 82 Year
  Sex: Female

DRUGS (6)
  1. LOVENOX [Suspect]
     Active Substance: ENOXAPARIN SODIUM
     Indication: PROPHYLAXIS
     Dates: start: 20191212, end: 20200123
  2. TERCIAN 40 MG/ML, SOLUTION BUVABLE EN GOUTTES [Suspect]
     Active Substance: CYAMEMAZINE
     Indication: PRODUCT USED FOR UNKNOWN INDICATION
     Dates: start: 20191219, end: 20200123
  3. CITALOPRAM (CHLORHYDRATE DE) [Concomitant]
     Active Substance: CITALOPRAM HYDROCHLORIDE
  4. CHLORHYDRATE DE CLOMIPRAMINE [Suspect]
     Active Substance: CLOMIPRAMINE HYDROCHLORIDE
     Indication: PRODUCT USED FOR UNKNOWN INDICATION
     Route: 048
     Dates: start: 20200109, end: 20200122
  5. TIAPRIDAL 5 MG/GOUTTE, SOLUTION BUVABLE EN GOUTTES [Concomitant]
     Active Substance: TIAPRIDE HYDROCHLORIDE
     Dosage: 5 MG / DROP
     Dates: end: 20191220
  6. SERESTA [Concomitant]
     Active Substance: OXAZEPAM

REACTIONS (1)
  - Cholestasis [Recovering/Resolving]

NARRATIVE: CASE EVENT DATE: 20200121
